FAERS Safety Report 9924915 (Version 9)
Quarter: 2015Q2

REPORT INFORMATION
  Report Type: Spontaneous
  Country: JP (occurrence: None)
  Receive Date: 20140221
  Receipt Date: 20150506
  Transmission Date: 20150821
  Serious: Yes (Death, Life-Threatening, Hospitalization, Other)
  Sender: FDA-Public Use
  Company Number: ADR-2014-00275

PATIENT
  Age: 73 Year
  Sex: Male

DRUGS (3)
  1. GABALON INTRATHECAL [Suspect]
     Active Substance: BACLOFEN
     Indication: HYPERTENSION
     Dosage: SEE B5
  2. GABALON INTRATHECAL [Suspect]
     Active Substance: BACLOFEN
     Dosage: SEE B5
  3. GABALON INTRATHECAL [Suspect]
     Active Substance: BACLOFEN
     Indication: SPINAL CORD DISORDER
     Dosage: SEE B5

REACTIONS (11)
  - Sepsis [None]
  - Disseminated intravascular coagulation [None]
  - Shock [None]
  - Ileus [None]
  - Condition aggravated [None]
  - Malaise [None]
  - Chest discomfort [None]
  - Depressed level of consciousness [None]
  - General physical health deterioration [None]
  - Acute myocardial infarction [None]
  - Atrial fibrillation [None]

NARRATIVE: CASE EVENT DATE: 20131220
